FAERS Safety Report 7921142-X (Version None)
Quarter: 2011Q4

REPORT INFORMATION
  Report Type: 
  Country: None (occurrence: None)
  Receive Date: 20111117
  Receipt Date: 20111109
  Transmission Date: 20120403
  Serious: Yes (Hospitalization, Other)
  Sender: FDA-Public Use
  Company Number: PHHY2011PL098657

PATIENT
  Age: 44 Year
  Sex: Male
  Weight: 76 kg

DRUGS (2)
  1. KETOPROFEN [Suspect]
     Dosage: UNK
  2. TRAMADOL HCL [Suspect]
     Dosage: UNK

REACTIONS (8)
  - SUICIDE ATTEMPT [None]
  - HYPERCHLORAEMIA [None]
  - CHEMICAL INJURY [None]
  - DYSPEPSIA [None]
  - HYPERNATRAEMIA [None]
  - NAUSEA [None]
  - DIARRHOEA [None]
  - METABOLIC ACIDOSIS [None]
